FAERS Safety Report 9265228 (Version 1)
Quarter: 2013Q2

REPORT INFORMATION
  Report Type: Report from Study
  Country: DE (occurrence: DE)
  Receive Date: 20130501
  Receipt Date: 20130501
  Transmission Date: 20140414
  Serious: Yes (Other)
  Sender: FDA-Public Use
  Company Number: DE-UCBSA-084637

PATIENT
  Age: 12 Year
  Sex: Male

DRUGS (1)
  1. METHYLPHENIDATE [Suspect]

REACTIONS (3)
  - Ventricular arrhythmia [Unknown]
  - Ventricular parasystole [Unknown]
  - Accelerated idioventricular rhythm [Unknown]
